FAERS Safety Report 16157932 (Version 1)
Quarter: 2019Q2

REPORT INFORMATION
  Report Type: Spontaneous
  Country: CN (occurrence: CN)
  Receive Date: 20190404
  Receipt Date: 20190404
  Transmission Date: 20190711
  Serious: Yes (Other)
  Sender: FDA-Public Use
  Company Number: CN-BAYER-2019-058433

PATIENT

DRUGS (1)
  1. NEXAVAR [Suspect]
     Active Substance: SORAFENIB
     Dosage: UNK
     Route: 048
     Dates: start: 201803

REACTIONS (3)
  - Cerebral infarction [None]
  - Musculoskeletal disorder [None]
  - Cerebral infarction [None]

NARRATIVE: CASE EVENT DATE: 201812
